FAERS Safety Report 9303851 (Version 3)
Quarter: 2013Q3

REPORT INFORMATION
  Report Type: Spontaneous
  Country: US (occurrence: US)
  Receive Date: 20130522
  Receipt Date: 20130730
  Transmission Date: 20140515
  Serious: Yes (Other)
  Sender: FDA-Public Use
  Company Number: US-BAYER-2013-063305

PATIENT
  Age: 27 Year
  Sex: Female

DRUGS (5)
  1. YASMIN [Suspect]
     Dosage: UNK
     Dates: start: 20100202
  2. YASMIN [Suspect]
     Dosage: UNK
     Dates: start: 20101211
  3. YASMIN [Suspect]
     Dosage: UNK
     Dates: start: 20110517
  4. MICROGYNON [Concomitant]
     Dosage: 100 MCG/20
     Dates: start: 20110502
  5. MICROGYNON [Concomitant]
     Dosage: UNK
     Dates: start: 20100825

REACTIONS (6)
  - Retinal artery thrombosis [None]
  - Retinal vein occlusion [None]
  - Injury [None]
  - Emotional distress [None]
  - Pain [None]
  - Pain [None]
